FAERS Safety Report 23091413 (Version 1)
Quarter: 2023Q4

REPORT INFORMATION
  Report Type: Spontaneous
  Country: US (occurrence: US)
  Receive Date: 20231020
  Receipt Date: 20231020
  Transmission Date: 20240110
  Serious: No
  Sender: FDA-Public Use
  Company Number: US-BoehringerIngelheim-2023-BI-268228

PATIENT
  Age: 64 Year
  Sex: Male

DRUGS (1)
  1. JENTADUETO [Suspect]
     Active Substance: LINAGLIPTIN\METFORMIN HYDROCHLORIDE
     Indication: Product used for unknown indication
     Dosage: 2.5/1000 MG
     Route: 048

REACTIONS (1)
  - Hypoacusis [Not Recovered/Not Resolved]
